FAERS Safety Report 12955038 (Version 1)
Quarter: 2016Q4

REPORT INFORMATION
  Report Type: Report from Study
  Country: US (occurrence: US)
  Receive Date: 20161118
  Receipt Date: 20161118
  Transmission Date: 20170207
  Serious: Yes (Hospitalization, Other)
  Sender: FDA-Public Use
  Company Number: US-GILEAD-2016-0243527

PATIENT
  Age: 63 Year
  Sex: Female

DRUGS (9)
  1. FLUOXETINE [Concomitant]
     Active Substance: FLUOXETINE HYDROCHLORIDE
  2. ADCIRCA [Concomitant]
     Active Substance: TADALAFIL
  3. AMBRISENTAN [Suspect]
     Active Substance: AMBRISENTAN
     Indication: PULMONARY HYPERTENSION
     Dosage: 5 MG, QD
     Route: 065
     Dates: start: 20161019, end: 20161023
  4. METOPROLOL. [Concomitant]
     Active Substance: METOPROLOL
  5. LANSOPRAZOLE. [Concomitant]
     Active Substance: LANSOPRAZOLE
  6. VALSARTAN. [Concomitant]
     Active Substance: VALSARTAN
  7. NAPROXEN. [Concomitant]
     Active Substance: NAPROXEN
  8. CENTRUM SILVER                     /02363801/ [Concomitant]
     Active Substance: MINERALS\VITAMINS
  9. DIGOXIN. [Concomitant]
     Active Substance: DIGOXIN

REACTIONS (3)
  - Liver sarcoidosis [Not Recovered/Not Resolved]
  - Dyspnoea [Unknown]
  - Cardiac sarcoidosis [Not Recovered/Not Resolved]

NARRATIVE: CASE EVENT DATE: 201610
